FAERS Safety Report 5524252-X (Version None)
Quarter: 2007Q4

REPORT INFORMATION
  Report Type: 
  Country: None (occurrence: None)
  Receive Date: 20071121
  Receipt Date: 20071113
  Transmission Date: 20080405
  Serious: Yes (Hospitalization)
  Sender: FDA-Public Use
  Company Number: US-PFIZER INC-2007094933

PATIENT
  Age: 73 Year
  Sex: Male
  Weight: 118.8 kg

DRUGS (1)
  1. SUTENT [Suspect]
     Route: 048

REACTIONS (1)
  - CHEST PAIN [None]
